FAERS Safety Report 11778532 (Version 1)
Quarter: 2015Q4

REPORT INFORMATION
  Report Type: Spontaneous
  Country: US (occurrence: US)
  Receive Date: 20151125
  Receipt Date: 20151125
  Transmission Date: 20160304
  Serious: Yes (Death, Life-Threatening, Other)
  Sender: FDA-Public Use
  Company Number: PHHY2015US151850

PATIENT
  Age: 77 Year
  Sex: Male

DRUGS (1)
  1. LEFLUNOMIDE. [Suspect]
     Active Substance: LEFLUNOMIDE
     Indication: RHEUMATOID ARTHRITIS
     Route: 065

REACTIONS (5)
  - Pneumonia pseudomonal [Fatal]
  - Septic shock [Unknown]
  - Lactic acidosis [Fatal]
  - Acute respiratory distress syndrome [Unknown]
  - Multi-organ failure [Fatal]
